APPROVED DRUG PRODUCT: BRAFTOVI
Active Ingredient: ENCORAFENIB
Strength: 50MG
Dosage Form/Route: CAPSULE;ORAL
Application: N210496 | Product #001
Applicant: ARRAY BIOPHARMA INC
Approved: Jun 27, 2018 | RLD: Yes | RS: No | Type: DISCN

PATENTS:
Patent 9314464 | Expires: Jul 4, 2031
Patent 8541575 | Expires: Feb 26, 2030
Patent 9850230 | Expires: Aug 27, 2030
Patent 9763941 | Expires: Nov 21, 2032
Patent 10005761 | Expires: Aug 27, 2030
Patent 9850229 | Expires: Aug 27, 2030
Patent 8946250 | Expires: Jul 23, 2029
Patent 9593099 | Expires: Aug 27, 2030
Patent 9593100 | Expires: Aug 27, 2030
Patent 9387208 | Expires: Nov 21, 2032

EXCLUSIVITY:
Code: I-928 | Date: Oct 11, 2026
Code: I-957 | Date: Dec 20, 2027
Code: ODE-445 | Date: Oct 11, 2030